FAERS Safety Report 14983275 (Version 1)
Quarter: 2018Q2

REPORT INFORMATION
  Report Type: Spontaneous
  Country: US (occurrence: US)
  Receive Date: 20180607
  Receipt Date: 20180607
  Transmission Date: 20180711
  Serious: No
  Sender: FDA-Public Use
  Company Number: US-JNJFOC-20180536246

PATIENT
  Sex: Female
  Weight: 60.33 kg

DRUGS (1)
  1. TYLENOL EXTRA STRENGTH [Suspect]
     Active Substance: ACETAMINOPHEN
     Indication: HEADACHE
     Dosage: STARTED ABOUT A MONTH AGO
     Route: 048
     Dates: start: 2018

REACTIONS (2)
  - Exposure during pregnancy [Unknown]
  - Product storage error [Unknown]

NARRATIVE: CASE EVENT DATE: 2018
